FAERS Safety Report 12557271 (Version 1)
Quarter: 2016Q3

REPORT INFORMATION
  Report Type: Spontaneous
  Country: FR (occurrence: FR)
  Receive Date: 20160714
  Receipt Date: 20160714
  Transmission Date: 20161109
  Serious: Yes (Life-Threatening, Hospitalization)
  Sender: FDA-Public Use
  Company Number: FR-FRESENIUS KABI-FK201604281

PATIENT
  Age: 67 Year
  Sex: Male

DRUGS (7)
  1. GELOFUSINE [Suspect]
     Active Substance: GELATIN\SODIUM CHLORIDE
     Indication: PRODUCT USED FOR UNKNOWN INDICATION
     Route: 041
     Dates: start: 20160623
  2. PROPOFOL. [Concomitant]
     Active Substance: PROPOFOL
  3. SUFENTANIL [Concomitant]
     Active Substance: SUFENTANIL
  4. EXACYL [Concomitant]
     Active Substance: TRANEXAMIC ACID
  5. CEFUROXIM FRESENIUS 1500 MG [Suspect]
     Active Substance: CEFUROXIME
     Indication: PRODUCT USED FOR UNKNOWN INDICATION
     Route: 042
     Dates: start: 20160623
  6. CISTRACAURIUM [Concomitant]
  7. EXACYL [Suspect]
     Active Substance: TRANEXAMIC ACID
     Indication: PRODUCT USED FOR UNKNOWN INDICATION
     Route: 042
     Dates: start: 20160623

REACTIONS (2)
  - Hypotension [Recovered/Resolved]
  - Vasoplegia syndrome [Recovered/Resolved]

NARRATIVE: CASE EVENT DATE: 20160623
